FAERS Safety Report 26011579 (Version 1)
Quarter: 2025Q4

REPORT INFORMATION
  Report Type: Spontaneous
  Country: CA (occurrence: CA)
  Receive Date: 20251107
  Receipt Date: 20251107
  Transmission Date: 20260117
  Serious: Yes (Life-Threatening, Other)
  Sender: MERCK SHARP & DOHME LLC
  Company Number: CA-009507513-2344818

PATIENT
  Age: 39 Year
  Sex: Female
  Weight: 70 kg

DRUGS (6)
  1. BRIDION [Suspect]
     Active Substance: SUGAMMADEX SODIUM
     Indication: Neuromuscular blockade reversal
     Dosage: TIME INTERVAL: TOTAL: 2 ML+5ML SINGLE USE VIALS, FREQUENCY: ONCE
     Route: 042
  2. ETHINYL ESTRADIOL\LEVONORGESTREL [Concomitant]
     Active Substance: ETHINYL ESTRADIOL\LEVONORGESTREL
  3. HYDROMORPHONE [Concomitant]
     Active Substance: HYDROMORPHONE
  4. POLYETHYLENE GLYCOL 3350 [Concomitant]
     Active Substance: POLYETHYLENE GLYCOL 3350
     Route: 048
  5. LEVOTHYROXINE SODIUM [Concomitant]
     Active Substance: LEVOTHYROXINE SODIUM
     Route: 065
  6. SEMAGLUTIDE [Concomitant]
     Active Substance: SEMAGLUTIDE

REACTIONS (2)
  - Pulseless electrical activity [Recovered/Resolved]
  - Ventricular asystole [Recovered/Resolved]
